FAERS Safety Report 14094839 (Version 9)
Quarter: 2021Q1

REPORT INFORMATION
  Report Type: Spontaneous
  Country: US (occurrence: US)
  Receive Date: 20171016
  Receipt Date: 20210125
  Transmission Date: 20210419
  Serious: Yes (Hospitalization, Other)
  Sender: FDA-Public Use
  Company Number: US-SA-2017SA198216

PATIENT
  Age: 86 Year
  Sex: Female
  Weight: 86.18 kg

DRUGS (6)
  1. LIPITOR [Concomitant]
     Active Substance: ATORVASTATIN CALCIUM
     Dosage: UNK
     Route: 065
  2. NEXIUM I.V. [Concomitant]
     Active Substance: ESOMEPRAZOLE SODIUM
     Dosage: UNK
     Route: 065
  3. PLAVIX [Suspect]
     Active Substance: CLOPIDOGREL BISULFATE
     Indication: STENT PLACEMENT
  4. PLAVIX [Suspect]
     Active Substance: CLOPIDOGREL BISULFATE
     Indication: CEREBROVASCULAR ACCIDENT PROPHYLAXIS
     Dosage: 75 MG,QD
     Route: 048
     Dates: start: 20060615
  5. METFORMIN HYDROCHLORIDE. [Suspect]
     Active Substance: METFORMIN HYDROCHLORIDE
     Dosage: 50 MG,QD
     Route: 048
  6. BRILINTA [Concomitant]
     Active Substance: TICAGRELOR
     Dosage: UNK
     Route: 065

REACTIONS (31)
  - Myocardial infarction [Unknown]
  - Iliac artery occlusion [Unknown]
  - Malaise [Unknown]
  - Cardiac disorder [Unknown]
  - Insomnia [Unknown]
  - Fumbling [Unknown]
  - Anxiety [Unknown]
  - Dizziness [Unknown]
  - Meningioma [Unknown]
  - Brain neoplasm [Unknown]
  - Cerebrovascular accident [Recovered/Resolved with Sequelae]
  - Hospitalisation [Unknown]
  - Bronchitis [Unknown]
  - Hypoaesthesia [Unknown]
  - Dyspnoea [Unknown]
  - Back injury [Unknown]
  - Bronchitis viral [Unknown]
  - Stent placement [Unknown]
  - Blood pressure abnormal [Recovered/Resolved]
  - Stress [Unknown]
  - Fall [Unknown]
  - Hypertension [Unknown]
  - Feeling abnormal [Recovering/Resolving]
  - Speech disorder [Unknown]
  - Blood pressure measurement [Unknown]
  - Pelvic deformity [Unknown]
  - Transient ischaemic attack [Recovered/Resolved with Sequelae]
  - Symphysiolysis [Unknown]
  - Heart rate [Unknown]
  - Concussion [Unknown]
  - Illness [Unknown]

NARRATIVE: CASE EVENT DATE: 20060615
